FAERS Safety Report 6370738-8 (Version None)
Quarter: 2009Q3

REPORT INFORMATION
  Report Type: 
  Country: None (occurrence: None)
  Receive Date: 20090923
  Receipt Date: 20070831
  Transmission Date: 20100115
  Serious: Yes (Other)
  Sender: FDA-Public Use
  Company Number: US-ASTRAZENECA-2006UW25960

PATIENT
  Sex: Female
  Weight: 88 kg

DRUGS (27)
  1. SEROQUEL [Suspect]
     Indication: ANXIETY
     Dosage: 100MG TO 200MG, AT NIGHT
     Route: 048
     Dates: start: 20010921
  2. SEROQUEL [Suspect]
     Indication: DEPRESSION
     Dosage: 100MG TO 200MG, AT NIGHT
     Route: 048
     Dates: start: 20010921
  3. SEROQUEL [Suspect]
     Indication: BIPOLAR DISORDER
     Dosage: 100MG TO 200MG, AT NIGHT
     Route: 048
     Dates: start: 20010921
  4. SEROQUEL [Suspect]
     Indication: SLEEP DISORDER
     Dosage: 100MG TO 200MG, AT NIGHT
     Route: 048
     Dates: start: 20010921
  5. SEROQUEL [Suspect]
     Indication: PSYCHOTIC DISORDER
     Dosage: 100MG TO 200MG, AT NIGHT
     Route: 048
     Dates: start: 20010921
  6. SEROQUEL [Suspect]
     Dosage: 100 TO 400 MG
     Route: 048
  7. SEROQUEL [Suspect]
     Dosage: 100 TO 400 MG
     Route: 048
  8. SEROQUEL [Suspect]
     Dosage: 100 TO 400 MG
     Route: 048
  9. SEROQUEL [Suspect]
     Dosage: 100 TO 400 MG
     Route: 048
  10. SEROQUEL [Suspect]
     Dosage: 100 TO 400 MG
     Route: 048
  11. CLOZARIL [Concomitant]
  12. THORAZINE [Concomitant]
  13. RISPERIDONE [Concomitant]
     Dosage: 2MG, TWO TABS AT NIGHT
     Route: 048
     Dates: start: 20020408
  14. TRAZODONE [Concomitant]
     Route: 048
     Dates: start: 20031003
  15. GABAPENTIN [Concomitant]
     Route: 048
     Dates: start: 20010328, end: 20031020
  16. EFFEXOR [Concomitant]
     Route: 048
     Dates: start: 20010824
  17. ARTANE [Concomitant]
     Route: 048
     Dates: start: 20040618
  18. PROLIXIN DECANOATE [Concomitant]
     Dosage: 12.5MG TO 25MG, EVERY TWO WEEK
     Route: 030
     Dates: start: 20040315
  19. WELLBUTRIN [Concomitant]
     Indication: DEPRESSION
     Route: 048
     Dates: start: 20030521
  20. SYNTHROID [Concomitant]
     Route: 048
     Dates: start: 19950517
  21. VISTARIL [Concomitant]
     Indication: ANXIETY
     Dosage: 50MG, THREE TIMES A DAY PRN
     Route: 048
     Dates: start: 20031003
  22. LEXAPRO [Concomitant]
     Route: 048
     Dates: start: 20031003
  23. KLONOPIN [Concomitant]
     Route: 048
     Dates: start: 20010824
  24. SOMA [Concomitant]
     Route: 048
     Dates: start: 19950518
  25. COGENTIN [Concomitant]
     Route: 048
     Dates: start: 20010328
  26. HALDOL [Concomitant]
     Route: 048
     Dates: start: 20010328
  27. VALPROIC ACID [Concomitant]
     Dosage: 250 MG, 3 TABS IN MORNING, 1 TAB AT NIGHT
     Route: 048

REACTIONS (3)
  - DIABETES MELLITUS [None]
  - DIABETIC COMA [None]
  - DIABETIC KETOACIDOSIS [None]
